FAERS Safety Report 23944476 (Version 1)
Quarter: 2024Q2

REPORT INFORMATION
  Report Type: Spontaneous
  Country: JP (occurrence: JP)
  Receive Date: 20240606
  Receipt Date: 20240606
  Transmission Date: 20240716
  Serious: Yes (Life-Threatening, Hospitalization, Other)
  Sender: FDA-Public Use
  Company Number: JP-862174955-ML2024-03334

PATIENT
  Age: 47 Year
  Sex: Male

DRUGS (3)
  1. ACETAMINOPHEN\TRAMADOL [Suspect]
     Active Substance: ACETAMINOPHEN\TRAMADOL
     Indication: Back pain
     Dosage: TRAMADOL/ACETAMINOPHEN DOSE EQUIVALENT: 1,575 MG/13,650 MG
     Route: 048
  2. ACETYLCYSTEINE [Concomitant]
     Active Substance: ACETYLCYSTEINE
     Indication: Product used for unknown indication
  3. NALOXONE [Concomitant]
     Active Substance: NALOXONE
     Indication: Product used for unknown indication

REACTIONS (4)
  - CHANTER syndrome [Recovered/Resolved]
  - Leukoencephalopathy [Recovered/Resolved]
  - Toxicity to various agents [Unknown]
  - Overdose [Unknown]
